FAERS Safety Report 10605771 (Version 1)
Quarter: 2014Q4

REPORT INFORMATION
  Report Type: Spontaneous
  Country: US (occurrence: US)
  Receive Date: 20141125
  Receipt Date: 20141125
  Transmission Date: 20150529
  Serious: Yes (Hospitalization)
  Sender: FDA-Public Use
  Company Number: US-AUROBINDO-AUR-APL-2014-12442

PATIENT
  Age: 53 Year
  Sex: Male

DRUGS (2)
  1. DAPTOMYCIN. [Interacting]
     Active Substance: DAPTOMYCIN
     Indication: OSTEOMYELITIS
     Dosage: 5.7 MG/KG (650 MG), UNK
     Route: 065
  2. SIMVASTATIN 80MG [Suspect]
     Active Substance: SIMVASTATIN
     Indication: PRODUCT USED FOR UNKNOWN INDICATION
     Dosage: 80 MG, UNK
     Route: 065

REACTIONS (3)
  - Blood creatine phosphokinase increased [Unknown]
  - Drug interaction [Unknown]
  - Myalgia [Unknown]
